FAERS Safety Report 4938409-X (Version None)
Quarter: 2006Q1

REPORT INFORMATION
  Report Type: 
  Country: None (occurrence: None)
  Receive Date: 20060308
  Receipt Date: 20060308
  Transmission Date: 20060701
  Serious: Yes (Hospitalization)
  Sender: FDA-Public Use
  Company Number: None

PATIENT
  Sex: Female
  Weight: 96.6162 kg

DRUGS (2)
  1. GAMUNEX [Suspect]
     Indication: DERMATOMYOSITIS
     Dosage: 88 GM ONCE IV DRIP
     Route: 041
     Dates: start: 20060223, end: 20060223
  2. GAMUNEX [Suspect]
     Indication: DERMATOMYOSITIS
     Dosage: 88 GM ONCE IV DRIP
     Route: 041
     Dates: start: 20060223, end: 20060223

REACTIONS (6)
  - BACK PAIN [None]
  - CHILLS [None]
  - INFUSION RELATED REACTION [None]
  - NAUSEA [None]
  - PYREXIA [None]
  - VIRAL INFECTION [None]
